FAERS Safety Report 5385358-1 (Version None)
Quarter: 2007Q3

REPORT INFORMATION
  Report Type: 
  Country: None (occurrence: None)
  Receive Date: 20070709
  Receipt Date: 20070629
  Transmission Date: 20080115
  Serious: Yes (Hospitalization)
  Sender: FDA-Public Use
  Company Number: 163-21880-07070064

PATIENT
  Age: 56 Year
  Sex: Male

DRUGS (4)
  1. REVLIMID [Suspect]
     Indication: MULTIPLE MYELOMA
     Dosage: DAILY X21 DAYS, ORAL
     Route: 048
     Dates: start: 20070501
  2. NORVASC [Concomitant]
  3. LYRICA [Concomitant]
  4. MORPHINE SULFATE [Concomitant]

REACTIONS (3)
  - ARTHRALGIA [None]
  - BONE DISORDER [None]
  - RASH PRURITIC [None]
